FAERS Safety Report 5572069-2 (Version None)
Quarter: 2007Q4

REPORT INFORMATION
  Report Type: 
  Country: None (occurrence: None)
  Receive Date: 20071221
  Receipt Date: 20071217
  Transmission Date: 20080405
  Serious: Yes (Death, Hospitalization, Other)
  Sender: FDA-Public Use
  Company Number: US-PFIZER INC-2007037543

PATIENT
  Sex: Female
  Weight: 81.6 kg

DRUGS (1)
  1. CELEBREX [Suspect]
     Indication: PAIN
     Route: 048

REACTIONS (1)
  - CEREBROVASCULAR ACCIDENT [None]
